FAERS Safety Report 22110815 (Version 1)
Quarter: 2023Q1

REPORT INFORMATION
  Report Type: Spontaneous
  Country: US (occurrence: None)
  Receive Date: 20230317
  Receipt Date: 20230317
  Transmission Date: 20230417
  Serious: No
  Sender: FDA-Public Use
  Company Number: None

PATIENT
  Age: 74 Year
  Sex: Female
  Weight: 68.2 kg

DRUGS (1)
  1. CEMIPLIMAB [Suspect]
     Active Substance: CEMIPLIMAB
     Indication: Squamous cell carcinoma
     Dosage: OTHER FREQUENCY : EVERY 21 DAYS;?
     Route: 042
     Dates: start: 20230222, end: 20230315

REACTIONS (5)
  - Infusion related reaction [None]
  - Back pain [None]
  - Refusal of treatment by patient [None]
  - Blood pressure systolic increased [None]
  - Drug hypersensitivity [None]

NARRATIVE: CASE EVENT DATE: 20230315
